FAERS Safety Report 24399617 (Version 3)
Quarter: 2025Q3

REPORT INFORMATION
  Report Type: Spontaneous
  Country: JP (occurrence: JP)
  Receive Date: 20241005
  Receipt Date: 20250802
  Transmission Date: 20251021
  Serious: Yes (Death, Hospitalization, Other)
  Sender: ALEXION PHARMACEUTICALS
  Company Number: JP-ASTRAZENECA-240104570_013120_P_1

PATIENT
  Age: 7 Decade
  Sex: Female

DRUGS (2)
  1. DURVALUMAB [Suspect]
     Active Substance: DURVALUMAB
     Dosage: 1500 MG 4????, UNKNOWN
     Dates: start: 2024
  2. TREMELIMUMAB [Suspect]
     Active Substance: TREMELIMUMAB

REACTIONS (3)
  - Cerebral haemorrhage [Fatal]
  - Diarrhoea [Recovered/Resolved]
  - Muscular weakness [Unknown]

NARRATIVE: CASE EVENT DATE: 20240101
